FAERS Safety Report 25936113 (Version 1)
Quarter: 2025Q4

REPORT INFORMATION
  Report Type: Spontaneous
  Country: RS (occurrence: RS)
  Receive Date: 20251017
  Receipt Date: 20251017
  Transmission Date: 20260117
  Serious: Yes (Other)
  Sender: TEVA
  Company Number: RS-TEVA-VS-3381617

PATIENT
  Age: 62 Year
  Sex: Female

DRUGS (3)
  1. CARBOPLATIN [Suspect]
     Active Substance: CARBOPLATIN
     Indication: Breast mass
     Dosage: CBDCA (AUC 1.5); 12 APPLICATIONS
     Route: 065
     Dates: start: 202406
  2. TAXOL [Suspect]
     Active Substance: PACLITAXEL
     Indication: Breast mass
     Dosage: 12 APPLICATIONS
     Route: 065
     Dates: start: 202406
  3. PEMBROLIZUMAB [Suspect]
     Active Substance: PEMBROLIZUMAB
     Indication: Breast mass
     Route: 065
     Dates: start: 202406

REACTIONS (5)
  - Neutropenia [Recovering/Resolving]
  - Cough [Unknown]
  - Paraesthesia [Unknown]
  - Polyneuropathy [Unknown]
  - Off label use [Unknown]

NARRATIVE: CASE EVENT DATE: 20240101
